FAERS Safety Report 5885124-4 (Version None)
Quarter: 2008Q3

REPORT INFORMATION
  Report Type: 
  Country: None (occurrence: None)
  Receive Date: 20080916
  Receipt Date: 20080911
  Transmission Date: 20090109
  Serious: Yes (Death)
  Sender: FDA-Public Use
  Company Number: US-MERCK-0809USA01897

PATIENT

DRUGS (3)
  1. ZOLINZA [Suspect]
     Indication: T-CELL LYMPHOMA
     Route: 048
  2. DOXIL [Suspect]
     Indication: T-CELL LYMPHOMA
     Route: 048
  3. BEXAROTENE [Suspect]
     Indication: T-CELL LYMPHOMA
     Route: 048

REACTIONS (1)
  - DEATH [None]
